FAERS Safety Report 9226456 (Version 1)
Quarter: 2013Q2

REPORT INFORMATION
  Report Type: Spontaneous
  Country: US (occurrence: US)
  Receive Date: 20130411
  Receipt Date: 20130411
  Transmission Date: 20140414
  Serious: Yes (Other)
  Sender: FDA-Public Use
  Company Number: US-ELI_LILLY_AND_COMPANY-US201304000459

PATIENT
  Age: 13 Year
  Sex: Male
  Weight: 58.96 kg

DRUGS (3)
  1. STRATTERA [Suspect]
     Indication: ATTENTION DEFICIT/HYPERACTIVITY DISORDER
     Dosage: 80 MG, QD
     Dates: start: 201204
  2. STRATTERA [Suspect]
     Dosage: 60 MG, QD
  3. STRATTERA [Suspect]
     Dosage: 25 MG, QD

REACTIONS (9)
  - Suicidal ideation [Unknown]
  - Sleep apnoea syndrome [Unknown]
  - Aggression [Not Recovered/Not Resolved]
  - Psychotic disorder [Unknown]
  - Irritability [Not Recovered/Not Resolved]
  - Anxiety [Unknown]
  - Agitation [Unknown]
  - Prescribed overdose [Unknown]
  - Intentional drug misuse [Unknown]
